FAERS Safety Report 5297200-8 (Version None)
Quarter: 2007Q2

REPORT INFORMATION
  Report Type: 
  Country: None (occurrence: None)
  Receive Date: 20070416
  Receipt Date: 20070403
  Transmission Date: 20071010
  Serious: Yes (Hospitalization, Other)
  Sender: FDA-Public Use
  Company Number: GB-JNJFOC-20070400809

PATIENT
  Sex: Female
  Weight: 63 kg

DRUGS (4)
  1. REMICADE [Suspect]
     Indication: RHEUMATOID ARTHRITIS
     Route: 042
     Dates: start: 20050117, end: 20060601
  2. METHOTREXATE [Concomitant]
     Route: 065
  3. CO-DYDRAMOL [Concomitant]
     Route: 065
  4. LODINE [Concomitant]
     Route: 065

REACTIONS (1)
  - NUCLEAR MAGNETIC RESONANCE IMAGING [None]
